FAERS Safety Report 6263632-4 (Version None)
Quarter: 2009Q3

REPORT INFORMATION
  Report Type: 
  Country: None (occurrence: None)
  Receive Date: 20090710
  Receipt Date: 20090706
  Transmission Date: 20100115
  Serious: Yes (Hospitalization, Other)
  Sender: FDA-Public Use
  Company Number: US-BAYER-200923665NA

PATIENT
  Age: 28 Year
  Sex: Female
  Weight: 89 kg

DRUGS (2)
  1. MIRENA [Suspect]
     Indication: CONTRACEPTION
     Dosage: CONTINUOUS
     Route: 015
     Dates: start: 20090408, end: 20090411
  2. NUVARING [Concomitant]
     Indication: CONTRACEPTION
     Route: 067

REACTIONS (2)
  - ABDOMINAL PAIN [None]
  - UTERINE RUPTURE [None]
